FAERS Safety Report 17391398 (Version 2)
Quarter: 2020Q1

REPORT INFORMATION
  Report Type: Report from Study
  Country: US (occurrence: US)
  Receive Date: 20200207
  Receipt Date: 20200326
  Transmission Date: 20200409
  Serious: No
  Sender: FDA-Public Use
  Company Number: US-IPSEN BIOPHARMACEUTICALS, INC.-2020-02230

PATIENT
  Sex: Female

DRUGS (11)
  1. FERROUS SULFATE. [Concomitant]
     Active Substance: FERROUS SULFATE
     Route: 048
  2. SOMATULINE DEPOT [Suspect]
     Active Substance: LANREOTIDE ACETATE
     Indication: ACROMEGALY
     Dosage: THERAPY START: 2013-2016, 120 MG/0.5 ML SYRINGE
     Route: 058
     Dates: end: 20200224
  3. FLEXERIL [Concomitant]
     Active Substance: CYCLOBENZAPRINE HYDROCHLORIDE
     Indication: MUSCLE SPASMS
     Dosage: 10 MG
     Route: 048
  4. NORVASC [Concomitant]
     Active Substance: AMLODIPINE BESYLATE
     Route: 048
  5. TENORETIC [Concomitant]
     Active Substance: ATENOLOL\CHLORTHALIDONE
     Dosage: 50-25 MG PER TABLET, 1 TABLET
     Route: 048
  6. GABAPENTIN. [Concomitant]
     Active Substance: GABAPENTIN
     Dosage: 100 MG, ORAL, DAILY
     Route: 048
  7. NIZORAL [Concomitant]
     Active Substance: KETOCONAZOLE
     Dosage: 2 PERCENT CREAM TOPICALLY
     Route: 061
  8. LOTENSIN [Concomitant]
     Active Substance: BENAZEPRIL HYDROCHLORIDE
     Route: 048
  9. AMBIEN [Concomitant]
     Active Substance: ZOLPIDEM TARTRATE
     Dosage: 5 MG BY MOUTH NIGHTLY AS NEEDED
     Route: 048
  10. DOSTINEX [Concomitant]
     Active Substance: CABERGOLINE
     Dosage: 2 TABLETS BY MOUTH 2 TIMES A WEEK
     Route: 048
  11. NORCO [Concomitant]
     Active Substance: ACETAMINOPHEN\HYDROCODONE BITARTRATE
     Indication: PAIN
     Dosage: 5-325 MG PER TABLET, 1 TABLET EVERY 4 HOURS AS NEEDED
     Route: 048

REACTIONS (14)
  - Drug intolerance [Unknown]
  - Diarrhoea [Unknown]
  - Decreased appetite [Unknown]
  - Hyperhidrosis [Unknown]
  - Abdominal pain [Unknown]
  - Nausea [Unknown]
  - Dysphagia [Unknown]
  - Off label use [Unknown]
  - Chest pain [Unknown]
  - Nodule [Unknown]
  - Cholelithiasis [Unknown]
  - Insulin-like growth factor increased [Unknown]
  - Hypertension [Unknown]
  - Insomnia [Unknown]
